FAERS Safety Report 5671638-9 (Version None)
Quarter: 2008Q1

REPORT INFORMATION
  Report Type: 
  Country: None (occurrence: None)
  Receive Date: 20080313
  Receipt Date: 20080306
  Transmission Date: 20080703
  Serious: Yes (Other)
  Sender: FDA-Public Use
  Company Number: 2008SP004683

PATIENT
  Age: 7 Year

DRUGS (1)
  1. DESLORATADINE [Suspect]
     Indication: DRUG USE FOR UNKNOWN INDICATION
     Dosage: 2.5 MG; QD; PO
     Route: 048
     Dates: start: 20070601

REACTIONS (2)
  - ABNORMAL DREAMS [None]
  - HALLUCINATION [None]
